FAERS Safety Report 25514279 (Version 1)
Quarter: 2025Q3

REPORT INFORMATION
  Report Type: Spontaneous
  Country: US (occurrence: US)
  Receive Date: 20250703
  Receipt Date: 20250703
  Transmission Date: 20251021
  Serious: No
  Sender: RADIUS PHARM
  Company Number: US-RADIUS HEALTH INC.-2024US010265

PATIENT
  Age: 66 Year
  Sex: Female

DRUGS (2)
  1. TYMLOS [Suspect]
     Active Substance: ABALOPARATIDE
     Indication: Senile osteoporosis
     Route: 058
  2. XOLAIR [Concomitant]
     Active Substance: OMALIZUMAB
     Indication: Product used for unknown indication

REACTIONS (13)
  - Condition aggravated [Unknown]
  - Feeling cold [Unknown]
  - Tremor [Unknown]
  - Injection site pain [Unknown]
  - Pollakiuria [Unknown]
  - Urine abnormality [Unknown]
  - Urinary incontinence [Unknown]
  - Constipation [Unknown]
  - Skin disorder [Unknown]
  - Condition aggravated [Unknown]
  - Pollakiuria [Unknown]
  - Dysuria [Unknown]
  - Constipation [Unknown]

NARRATIVE: CASE EVENT DATE: 20241212
